FAERS Safety Report 5312881-8 (Version None)
Quarter: 2007Q2

REPORT INFORMATION
  Report Type: 
  Country: None (occurrence: None)
  Receive Date: 20070424
  Receipt Date: 20070413
  Transmission Date: 20071010
  Serious: Yes (Hospitalization)
  Sender: FDA-Public Use
  Company Number: CIP07000714

PATIENT
  Age: 39 Year
  Sex: Male

DRUGS (2)
  1. ASACOL [Suspect]
     Dosage: 1200 MG, 3/DAY, ORAL
     Route: 048
     Dates: start: 20060101, end: 20070101
  2. MESALAMINE (MESALAZINE) RECTAL FOAM [Concomitant]

REACTIONS (2)
  - GASTRIC ULCER [None]
  - PYREXIA [None]
